FAERS Safety Report 23560354 (Version 4)
Quarter: 2024Q2

REPORT INFORMATION
  Report Type: Spontaneous
  Country: US (occurrence: US)
  Receive Date: 20240223
  Receipt Date: 20240620
  Transmission Date: 20240716
  Serious: No
  Sender: FDA-Public Use
  Company Number: US-PFIZER INC-PV202400023706

PATIENT
  Age: 69 Year
  Sex: Female

DRUGS (3)
  1. IBRANCE [Suspect]
     Active Substance: PALBOCICLIB
     Dosage: 125 MG, EVERY OTHER DAY
  2. IBRANCE [Suspect]
     Active Substance: PALBOCICLIB
     Dosage: 125 MG, WEEK ON WEEK OFF
  3. IBRANCE [Suspect]
     Active Substance: PALBOCICLIB
     Dosage: 125 MG, ONE WEEK ON TWO WEEKS OFF

REACTIONS (12)
  - Hypoaesthesia [Recovered/Resolved]
  - Pain [Unknown]
  - Poor quality sleep [Unknown]
  - Asthenia [Unknown]
  - Depression [Unknown]
  - Malaise [Unknown]
  - Full blood count decreased [Unknown]
  - Contusion [Unknown]
  - Fatigue [Unknown]
  - Ageusia [Unknown]
  - Skin discolouration [Unknown]
  - Off label use [Unknown]
